FAERS Safety Report 6019235-X (Version None)
Quarter: 2008Q4

REPORT INFORMATION
  Report Type: 
  Country: None (occurrence: None)
  Receive Date: 20081224
  Receipt Date: 20081212
  Transmission Date: 20090506
  Serious: Yes (Congenital Anomaly, Other)
  Sender: FDA-Public Use
  Company Number: US-PFIZER INC-2008049889

PATIENT
  Sex: Male
  Weight: 3.6 kg

DRUGS (2)
  1. ZOLOFT [Suspect]
  2. VICODIN [Concomitant]
     Indication: NEURALGIA

REACTIONS (4)
  - ANOMALY OF EXTERNAL EAR CONGENITAL [None]
  - CRANIOSYNOSTOSIS [None]
  - DRUG EXPOSURE DURING PREGNANCY [None]
  - PLAGIOCEPHALY [None]
